FAERS Safety Report 18028334 (Version 4)
Quarter: 2021Q2

REPORT INFORMATION
  Report Type: Spontaneous
  Country: AU (occurrence: AU)
  Receive Date: 20200715
  Receipt Date: 20210614
  Transmission Date: 20210717
  Serious: Yes (Hospitalization)
  Sender: FDA-Public Use
  Company Number: AU-MYLANLABS-2020M1064484

PATIENT
  Age: 40 Year
  Sex: Female

DRUGS (2)
  1. CLOZARIL [Suspect]
     Active Substance: CLOZAPINE
     Indication: SCHIZOPHRENIA
     Dosage: 475 MILLIGRAM
     Route: 048
     Dates: start: 20030521
  2. CLOZARIL [Suspect]
     Active Substance: CLOZAPINE
     Dosage: UNK
     Dates: start: 20210130

REACTIONS (3)
  - Treatment noncompliance [Not Recovered/Not Resolved]
  - Schizophrenia [Not Recovered/Not Resolved]
  - Dysentery [Not Recovered/Not Resolved]

NARRATIVE: CASE EVENT DATE: 20210524
